FAERS Safety Report 7588767-5 (Version None)
Quarter: 2011Q3

REPORT INFORMATION
  Report Type: 
  Country: None (occurrence: None)
  Receive Date: 20110705
  Receipt Date: 20110624
  Transmission Date: 20111222
  Serious: Yes (Hospitalization, Disabling)
  Sender: FDA-Public Use
  Company Number: JP-JNJFOC-20110302084

PATIENT
  Sex: Female
  Weight: 46 kg

DRUGS (8)
  1. DOXIL [Suspect]
     Route: 042
     Dates: start: 20100203, end: 20100203
  2. DEXAMETHASONE SODIUM PHOSPHATE [Concomitant]
     Indication: PROPHYLAXIS
     Route: 042
     Dates: start: 20091125, end: 20100303
  3. DOXIL [Suspect]
     Route: 042
     Dates: start: 20091125, end: 20091125
  4. UREA [Concomitant]
     Indication: PROPHYLAXIS
     Route: 061
     Dates: start: 20091124, end: 20100303
  5. DOXIL [Suspect]
     Route: 042
     Dates: start: 20100106, end: 20100106
  6. AZUNOL [Concomitant]
     Indication: PROPHYLAXIS
     Route: 049
     Dates: start: 20091124, end: 20100303
  7. DOXIL [Suspect]
     Indication: OVARIAN CANCER RECURRENT
     Route: 042
     Dates: start: 20100303, end: 20100303
  8. GRANISETRON [Concomitant]
     Indication: PROPHYLAXIS
     Route: 042
     Dates: start: 20091125, end: 20100303

REACTIONS (1)
  - CEREBRAL HAEMORRHAGE [None]
